FAERS Safety Report 16285296 (Version 1)
Quarter: 2019Q2

REPORT INFORMATION
  Report Type: Spontaneous
  Country: US (occurrence: US)
  Receive Date: 20190403
  Receipt Date: 20190403
  Transmission Date: 20190711
  Serious: Yes (Death)
  Sender: FDA-Public Use
  Company Number: None

PATIENT
  Age: 3 Year
  Sex: Male

DRUGS (10)
  1. LEVETIRACETAM. [Concomitant]
     Active Substance: LEVETIRACETAM
  2. DIAZEPAM. [Concomitant]
     Active Substance: DIAZEPAM
  3. TRACLEER [Suspect]
     Active Substance: BOSENTAN
     Route: 048
     Dates: start: 201604, end: 201903
  4. BACLOFEN. [Concomitant]
     Active Substance: BACLOFEN
  5. POLY-VI-SOL [Concomitant]
     Active Substance: VITAMINS
  6. FERROUS SULFATE. [Concomitant]
     Active Substance: FERROUS SULFATE
  7. OMPRAZOLE [Concomitant]
     Active Substance: OMEPRAZOLE
  8. LACTOBACILLUS ACIDOPHILUS\LACTOBACILLUS BULGARICUS [Concomitant]
     Active Substance: LACTOBACILLUS ACIDOPHILUS\LACTOBACILLUS DELBRUECKII SUBSP. BULGARICUS
  9. LACTULOSE. [Concomitant]
     Active Substance: LACTULOSE
  10. SENNOSIDES. [Concomitant]
     Active Substance: SENNOSIDES

REACTIONS (1)
  - Death [None]

NARRATIVE: CASE EVENT DATE: 20190402
